FAERS Safety Report 5325670-5 (Version None)
Quarter: 2007Q2

REPORT INFORMATION
  Report Type: 
  Country: None (occurrence: None)
  Receive Date: 20070509
  Receipt Date: 20070502
  Transmission Date: 20071010
  Serious: Yes (Other)
  Sender: FDA-Public Use
  Company Number: TAP2007Q00584

PATIENT
  Age: 39 Year
  Sex: Female
  Weight: 56.81 kg

DRUGS (1)
  1. LUPRON DEPOT [Suspect]
     Indication: ENDOMETRIOSIS
     Dosage: 3.75 MG, 1 IN 1 M, INTRAMUSCULAR
     Route: 030
     Dates: start: 20041201, end: 20050601

REACTIONS (10)
  - ACNE [None]
  - COGNITIVE DISORDER [None]
  - CONDITION AGGRAVATED [None]
  - EYE PAIN [None]
  - HAIR COLOUR CHANGES [None]
  - HIRSUTISM [None]
  - INSOMNIA [None]
  - IRIS HYPOPIGMENTATION [None]
  - MEMORY IMPAIRMENT [None]
  - PARAESTHESIA [None]
